FAERS Safety Report 16660519 (Version 4)
Quarter: 2019Q3

REPORT INFORMATION
  Report Type: Report from Study
  Country: DE (occurrence: DE)
  Receive Date: 20190802
  Receipt Date: 20190824
  Transmission Date: 20191004
  Serious: Yes (Hospitalization, Other)
  Sender: FDA-Public Use
  Company Number: DE-ROCHE-2360592

PATIENT
  Age: 74 Year
  Sex: Female
  Weight: 83 kg

DRUGS (2)
  1. ATEZOLIZUMAB. [Suspect]
     Active Substance: ATEZOLIZUMAB
     Indication: NON-SMALL CELL LUNG CANCER
     Route: 042
     Dates: start: 20190627, end: 20190627
  2. ELIQUIS [Concomitant]
     Active Substance: APIXABAN

REACTIONS (8)
  - Prerenal failure [Recovered/Resolved]
  - Thrombocytopenia [Recovered/Resolved]
  - Thrombosis [Unknown]
  - Sepsis [Unknown]
  - Leukopenia [Recovered/Resolved]
  - Pulmonary embolism [Unknown]
  - Pyrexia [Recovered/Resolved]
  - Depression [Unknown]

NARRATIVE: CASE EVENT DATE: 20190708
